FAERS Safety Report 15510700 (Version 1)
Quarter: 2018Q4

REPORT INFORMATION
  Report Type: Spontaneous
  Country: US (occurrence: US)
  Receive Date: 20181010
  Receipt Date: 20181010
  Transmission Date: 20190205
  Serious: Yes (Hospitalization)
  Sender: FDA-Public Use
  Company Number: None

PATIENT
  Age: 26 Year
  Sex: Male
  Weight: 82.3 kg

DRUGS (3)
  1. LEUCOVORIN 812MG [Concomitant]
     Dates: end: 20181001
  2. ELOXATIN [Concomitant]
     Active Substance: OXALIPLATIN
     Dates: end: 20181001
  3. 5-FU [Suspect]
     Active Substance: FLUOROURACIL

REACTIONS (2)
  - Nausea [None]
  - Vomiting [None]

NARRATIVE: CASE EVENT DATE: 20181004
